FAERS Safety Report 5831510-8 (Version None)
Quarter: 2008Q3

REPORT INFORMATION
  Report Type: 
  Country: None (occurrence: None)
  Receive Date: 20080801
  Receipt Date: 20080722
  Transmission Date: 20090109
  Serious: Yes (Other)
  Sender: FDA-Public Use
  Company Number: JP-PFIZER INC-2008061758

PATIENT
  Age: 71 Year
  Sex: Female

DRUGS (1)
  1. VFEND [Suspect]
     Dosage: DAILY DOSE:300MG
     Route: 048
     Dates: start: 20080718, end: 20080719

REACTIONS (1)
  - GASTROINTESTINAL PERFORATION [None]
